FAERS Safety Report 5477255-8 (Version None)
Quarter: 2007Q3

REPORT INFORMATION
  Report Type: 
  Country: None (occurrence: None)
  Receive Date: 20070904
  Receipt Date: 20070502
  Transmission Date: 20080115
  Serious: No
  Sender: FDA-Public Use
  Company Number: PHEH2007US06961

PATIENT
  Age: 72 Year
  Sex: Female

DRUGS (1)
  1. ENABLEX [Suspect]
     Indication: HYPERTONIC BLADDER
     Dosage: 7.5 MG,QD,ORAL
     Route: 048
     Dates: start: 20070501

REACTIONS (1)
  - BLOOD URINE PRESENT [None]
